FAERS Safety Report 14072840 (Version 1)
Quarter: 2017Q4

REPORT INFORMATION
  Report Type: Spontaneous
  Country: GB (occurrence: GB)
  Receive Date: 20171011
  Receipt Date: 20171011
  Transmission Date: 20180321
  Serious: Yes (Life-Threatening)
  Sender: FDA-Public Use
  Company Number: GB-DRREDDYS-GER/UKI/17/0093966

PATIENT
  Age: 70 Year
  Sex: Female
  Weight: 44.5 kg

DRUGS (1)
  1. OLANZAPINE. [Suspect]
     Active Substance: OLANZAPINE
     Indication: PRODUCT USED FOR UNKNOWN INDICATION
     Dosage: 15 MG, DAILY
     Dates: start: 2009

REACTIONS (2)
  - Cerebrovascular accident [Unknown]
  - Brain stem thrombosis [Unknown]
